FAERS Safety Report 4986926-9 (Version None)
Quarter: 2006Q2

REPORT INFORMATION
  Report Type: 
  Country: None (occurrence: None)
  Receive Date: 20060501
  Receipt Date: 20060406
  Transmission Date: 20061013
  Serious: Yes (Hospitalization)
  Sender: FDA-Public Use
  Company Number: PHBS2006BE05193

PATIENT
  Age: 76 Year
  Sex: Female

DRUGS (7)
  1. TEGRETOL [Suspect]
     Dosage: 200 MG/DAY
     Route: 048
     Dates: start: 20051216, end: 20060117
  2. NOCERTONE [Concomitant]
     Indication: MIGRAINE
     Dosage: 30 MG/DAY
     Route: 065
  3. SELOZOK [Concomitant]
     Indication: MIGRAINE
     Dosage: 50 MG/DAY
     Route: 065
  4. ERGOT ALKALOID [Concomitant]
     Dosage: UNK, PRN
  5. CALCIUM CARBONATE [Concomitant]
     Indication: OSTEOPOROSIS
     Dosage: 500 MG/DAY
     Route: 065
  6. ACETYLSALICYLIC ACID SRT [Concomitant]
     Route: 048
  7. EFFEXOR XR [Concomitant]
     Dosage: 75 MG/DAY
     Route: 065

REACTIONS (11)
  - ANOREXIA [None]
  - HALLUCINATION [None]
  - HEART RATE ABNORMAL [None]
  - HEPATIC FUNCTION ABNORMAL [None]
  - HYPONATRAEMIA [None]
  - INCOHERENT [None]
  - INSOMNIA [None]
  - LISTLESS [None]
  - MALAISE [None]
  - MITRAL VALVE INCOMPETENCE [None]
  - URINARY RETENTION [None]
